FAERS Safety Report 12708161 (Version 3)
Quarter: 2016Q4

REPORT INFORMATION
  Report Type: Spontaneous
  Country: JP (occurrence: JP)
  Receive Date: 20160901
  Receipt Date: 20161012
  Transmission Date: 20170207
  Serious: Yes (Hospitalization, Other)
  Sender: FDA-Public Use
  Company Number: JP-009507513-1608JPN013205

PATIENT
  Age: 65 Year
  Sex: Female
  Weight: 48 kg

DRUGS (6)
  1. BELSOMRA [Suspect]
     Active Substance: SUVOREXANT
     Indication: INSOMNIA
     Dosage: 20 MG, QD
     Route: 048
     Dates: start: 20160712, end: 20160728
  2. FLUDECASIN [Suspect]
     Active Substance: FLUPHENAZINE DECANOATE
     Indication: HALLUCINATION, AUDITORY
     Dosage: 25 MG, ONCE A DAY
     Route: 030
     Dates: start: 20160705, end: 20160705
  3. HALOMONTH [Concomitant]
     Active Substance: HALOPERIDOL DECANOATE
     Indication: HALLUCINATION, AUDITORY
     Dosage: 150 MG, QD
     Route: 030
     Dates: start: 20150414, end: 20160705
  4. ROCEPHIN [Concomitant]
     Active Substance: CEFTRIAXONE SODIUM
     Dosage: DAILY DOSAGE UNKNOWN
     Route: 041
     Dates: start: 20160728
  5. FLUDECASIN [Suspect]
     Active Substance: FLUPHENAZINE DECANOATE
     Indication: DELUSION
  6. HALOMONTH [Concomitant]
     Active Substance: HALOPERIDOL DECANOATE
     Indication: DELUSION

REACTIONS (3)
  - Overdose [Unknown]
  - Delusion [Unknown]
  - Rhabdomyolysis [Recovering/Resolving]

NARRATIVE: CASE EVENT DATE: 20160712
